FAERS Safety Report 6868408-2 (Version None)
Quarter: 2010Q3

REPORT INFORMATION
  Report Type: 
  Country: None (occurrence: None)
  Receive Date: 20100722
  Receipt Date: 20080527
  Transmission Date: 20110219
  Serious: No
  Sender: FDA-Public Use
  Company Number: US-PFIZER INC-2008046548

PATIENT
  Sex: Female
  Weight: 75 kg

DRUGS (3)
  1. CHANTIX [Suspect]
     Indication: SMOKING CESSATION THERAPY
     Route: 048
  2. LEVOXYL [Concomitant]
  3. PROZAC [Concomitant]

REACTIONS (4)
  - DISSOCIATION [None]
  - FEELING ABNORMAL [None]
  - INDIFFERENCE [None]
  - NAUSEA [None]
